FAERS Safety Report 5794903-3 (Version None)
Quarter: 2008Q2

REPORT INFORMATION
  Report Type: 
  Country: None (occurrence: None)
  Receive Date: 20080627
  Receipt Date: 20080627
  Transmission Date: 20081010
  Serious: No
  Sender: FDA-Public Use
  Company Number: None

PATIENT
  Age: 58 Year
  Sex: Male
  Weight: 208.6546 kg

DRUGS (1)
  1. DEFINITY [Suspect]
     Indication: ECHOCARDIOGRAM
     Dosage: 1ML-8CC SALINE/2CC DEFINITY BOLUS IV BOLUS
     Route: 040
     Dates: start: 20080620, end: 20080620

REACTIONS (2)
  - COUGH [None]
  - RESPIRATORY DISTRESS [None]
